FAERS Safety Report 23922535 (Version 4)
Quarter: 2025Q4

REPORT INFORMATION
  Report Type: Spontaneous
  Country: EU (occurrence: EU)
  Receive Date: 20240531
  Receipt Date: 20251118
  Transmission Date: 20260117
  Serious: Yes (Hospitalization, Other)
  Sender: AUROBINDO
  Company Number: EU-HIKMA PHARMACEUTICALS-DE-H14001-24-03788

PATIENT
  Age: 58 Year
  Sex: Male

DRUGS (10)
  1. OXALIPLATIN [Suspect]
     Active Substance: OXALIPLATIN
     Indication: Oesophageal adenocarcinoma
     Dosage: 70 MILLIGRAM/SQ. METER
     Dates: start: 20231120, end: 20240325
  2. OXALIPLATIN [Suspect]
     Active Substance: OXALIPLATIN
     Dosage: 70 MILLIGRAM/SQ. METER
     Dates: start: 20231205, end: 20240305
  3. OXALIPLATIN [Suspect]
     Active Substance: OXALIPLATIN
     Dosage: 70 MILLIGRAM/SQ. METER
     Dates: start: 20231205, end: 20240325
  4. LEUCOVORIN [Suspect]
     Active Substance: LEUCOVORIN\LEUCOVORIN CALCIUM
     Indication: Oesophageal adenocarcinoma
     Dosage: 250 MILLIGRAM/SQ. METER
  5. LEUCOVORIN [Suspect]
     Active Substance: LEUCOVORIN\LEUCOVORIN CALCIUM
     Dosage: 250 MILLIGRAM/SQ. METER
     Dates: start: 20231205, end: 20240219
  6. LEUCOVORIN [Suspect]
     Active Substance: LEUCOVORIN\LEUCOVORIN CALCIUM
     Dosage: 250 MILLIGRAM/SQ. METER
  7. FLUOROURACIL [Suspect]
     Active Substance: FLUOROURACIL
     Indication: Oesophageal adenocarcinoma
     Dosage: 1500 MILLIGRAM/SQ. METER
     Dates: start: 20231120, end: 20240219
  8. FLUOROURACIL [Suspect]
     Active Substance: FLUOROURACIL
     Dosage: 1500 MILLIGRAM/SQ. METER
     Dates: start: 20231205, end: 20240219
  9. FLUOROURACIL [Suspect]
     Active Substance: FLUOROURACIL
     Dosage: 1500 MILLIGRAM/SQ. METER
  10. TEVIMBRA [Suspect]
     Active Substance: TISLELIZUMAB-JSGR
     Indication: Oesophageal adenocarcinoma
     Dosage: 400 MILLIGRAM

REACTIONS (3)
  - Infection [Recovered/Resolved]
  - Pyrexia [Recovered/Resolved]
  - C-reactive protein increased [Unknown]

NARRATIVE: CASE EVENT DATE: 20240219
